FAERS Safety Report 12605043 (Version 1)
Quarter: 2016Q3

REPORT INFORMATION
  Report Type: Spontaneous
  Country: VE (occurrence: VE)
  Receive Date: 20160728
  Receipt Date: 20160728
  Transmission Date: 20161109
  Serious: Yes (Other)
  Sender: FDA-Public Use
  Company Number: PHHY2016VE103798

PATIENT
  Sex: Male

DRUGS (1)
  1. TRILEPTAL [Suspect]
     Active Substance: OXCARBAZEPINE
     Indication: SEIZURE
     Dosage: UNK UNK, QD
     Route: 048
     Dates: start: 201511

REACTIONS (4)
  - Nasopharyngitis [Unknown]
  - Autism [Unknown]
  - Seizure [Unknown]
  - Mutism [Unknown]
